FAERS Safety Report 21740894 (Version 3)
Quarter: 2023Q1

REPORT INFORMATION
  Report Type: Report from Study
  Country: KR (occurrence: None)
  Receive Date: 20221216
  Receipt Date: 20230116
  Transmission Date: 20230418
  Serious: Yes (Death, Hospitalization)
  Sender: FDA-Public Use
  Company Number: KR-ROCHE-3242546

PATIENT
  Age: 55 Year
  Sex: Female
  Weight: 64.6 kg

DRUGS (66)
  1. COBIMETINIB [Suspect]
     Active Substance: COBIMETINIB
     Indication: Malignant melanoma
     Dosage: LAST DOSE ON 09/DEC/2022, DOSE: (20 MG,1 IN 2 D)
     Route: 048
     Dates: start: 20220419
  2. MINOCIN [Concomitant]
     Active Substance: MINOCYCLINE HYDROCHLORIDE
     Indication: Rash
     Route: 048
     Dates: start: 20220503
  3. DESOWEN [Concomitant]
     Active Substance: DESONIDE
     Indication: Rash
     Dosage: 1 APPLICATION
     Route: 061
     Dates: start: 20220504
  4. TANTUM [Concomitant]
     Active Substance: BENZYDAMINE HYDROCHLORIDE
     Route: 061
     Dates: start: 20220517
  5. LIPITOR [Concomitant]
     Active Substance: ATORVASTATIN CALCIUM
     Indication: Hyperlipidaemia
     Route: 048
     Dates: start: 20221004
  6. URSODIOL [Concomitant]
     Active Substance: URSODIOL
     Dosage: 100 MG,1 IN 0.3 D
     Route: 048
     Dates: start: 20221101
  7. GODEX [ADENINE HYDROCHLORIDE;CARNITINE OROTATE;CYANOCOBALAMIN;LIVER;PY [Concomitant]
     Dosage: 2C
     Route: 048
     Dates: start: 20221101
  8. PANTOPRAZOLE SODIUM [Concomitant]
     Active Substance: PANTOPRAZOLE SODIUM
     Route: 042
     Dates: start: 20221206, end: 20221209
  9. VITIS VINIFERA ROOT [Concomitant]
     Active Substance: VITIS VINIFERA ROOT
     Indication: Lymphoedema
     Dosage: 150 MG,1 IN0.2 D
     Dates: start: 20220103
  10. FURTMAN [Concomitant]
     Route: 042
     Dates: start: 20221206, end: 20221207
  11. KABITWIN PERI [Concomitant]
     Route: 042
     Dates: start: 20221206, end: 20221207
  12. VITAMINS [Concomitant]
     Active Substance: VITAMINS
     Route: 042
     Dates: start: 20221206, end: 20221207
  13. PLASMA SOLUTION A [Concomitant]
     Route: 042
     Dates: start: 20221206, end: 20221209
  14. PLASMA SOLUTION A [Concomitant]
     Route: 042
     Dates: start: 20221230, end: 20221231
  15. MANNITOL [Concomitant]
     Active Substance: MANNITOL
     Route: 042
     Dates: start: 20221208, end: 20221230
  16. MANNITOL [Concomitant]
     Active Substance: MANNITOL
     Route: 042
     Dates: start: 20221215, end: 20221216
  17. MANNITOL [Concomitant]
     Active Substance: MANNITOL
     Route: 042
     Dates: start: 20221217, end: 20221218
  18. MANNITOL [Concomitant]
     Active Substance: MANNITOL
     Route: 042
     Dates: start: 20221219, end: 20221219
  19. MANNITOL [Concomitant]
     Active Substance: MANNITOL
     Dosage: 20% 299ML (1 IN 1 D)
     Route: 042
     Dates: start: 20221231, end: 20221231
  20. TRANEXAMIC ACID [Concomitant]
     Active Substance: TRANEXAMIC ACID
     Dosage: (1000 MG,2 IN 1 D)
     Route: 042
     Dates: start: 20221209, end: 20221214
  21. TRANEXAMIC ACID [Concomitant]
     Active Substance: TRANEXAMIC ACID
     Dosage: (1000 MG,3 IN 1 D)
     Route: 042
     Dates: start: 20221221, end: 20221231
  22. OMEPRAZOLE [Concomitant]
     Active Substance: OMEPRAZOLE
     Dosage: (20 MG,2 IN 1 D)
     Route: 042
     Dates: start: 20221210, end: 20221230
  23. MAGNESIUM HYDROXIDE [Concomitant]
     Active Substance: MAGNESIUM HYDROXIDE
     Route: 048
     Dates: start: 20221211, end: 20221219
  24. METOCLOPRAMIDE HYDROCHLORIDE [Concomitant]
     Active Substance: METOCLOPRAMIDE HYDROCHLORIDE
     Dosage: (10 MG,1 IN 1 D)
     Route: 042
     Dates: start: 20221214, end: 20221214
  25. METOCLOPRAMIDE HYDROCHLORIDE [Concomitant]
     Active Substance: METOCLOPRAMIDE HYDROCHLORIDE
     Route: 042
     Dates: start: 20221215, end: 20221215
  26. AMINO ACIDS\DEXTROSE\ELECTROLYTES NOS\SOYBEAN OIL [Concomitant]
     Active Substance: AMINO ACIDS\DEXTROSE\ELECTROLYTES NOS\SOYBEAN OIL
     Dosage: (1448 ML,1 IN 1 D)
     Route: 042
     Dates: start: 20221215, end: 20221217
  27. AMINO ACIDS\DEXTROSE\ELECTROLYTES NOS\SOYBEAN OIL [Concomitant]
     Active Substance: AMINO ACIDS\DEXTROSE\ELECTROLYTES NOS\SOYBEAN OIL
     Dosage: (1448 ML,1 IN 1 D)
     Route: 042
     Dates: start: 20221219, end: 20221221
  28. AMINO ACIDS\DEXTROSE\ELECTROLYTES NOS\SOYBEAN OIL [Concomitant]
     Active Substance: AMINO ACIDS\DEXTROSE\ELECTROLYTES NOS\SOYBEAN OIL
     Dosage: (1448 ML,1 IN 1 D)
     Route: 042
     Dates: start: 20221230, end: 20221231
  29. TRAMADOL HYDROCHLORIDE [Concomitant]
     Active Substance: TRAMADOL HYDROCHLORIDE
     Dosage: (50 MG,1 IN 1 D)
     Route: 042
     Dates: start: 20221215, end: 20221216
  30. ONSERAN [Concomitant]
     Dosage: (4 MG,1 IN 1 D)
     Route: 042
     Dates: start: 20221216, end: 20221216
  31. LIDOCAINE [Concomitant]
     Active Substance: LIDOCAINE
     Dosage: (200 MG,1 IN 1 D)
     Route: 058
     Dates: start: 20221212, end: 20221216
  32. KEROMIN [Concomitant]
     Dosage: (30 MG,1 IN 1 D)
     Route: 042
     Dates: start: 20221216, end: 20221216
  33. OFLOXACIN [Concomitant]
     Active Substance: OFLOXACIN
     Route: 061
     Dates: start: 20221216, end: 20221216
  34. CLOXACILLIN [Concomitant]
     Active Substance: CLOXACILLIN
     Dosage: (250 MG,3 IN 1 D)
     Route: 048
     Dates: start: 20221216, end: 20221220
  35. PROFA [Concomitant]
     Route: 048
     Dates: start: 20221217, end: 20221217
  36. RAMOSETRON HYDROCHLORIDE [Concomitant]
     Active Substance: RAMOSETRON HYDROCHLORIDE
     Dosage: (0.1 MG,1 IN 1 D)
     Route: 048
     Dates: start: 20221217, end: 20221223
  37. LANSOPRAZOLE [Concomitant]
     Active Substance: LANSOPRAZOLE
     Route: 048
     Dates: start: 20221225
  38. HERBALS [Concomitant]
     Active Substance: HERBALS
     Route: 048
     Dates: start: 20221217, end: 20221230
  39. HERBALS [Concomitant]
     Active Substance: HERBALS
     Route: 048
     Dates: start: 20221219, end: 20221225
  40. ANYFEN [Concomitant]
     Route: 048
     Dates: start: 20221217, end: 20221220
  41. ANYFEN [Concomitant]
     Route: 048
     Dates: start: 20221220, end: 20221230
  42. CEFTRIAXONE [Concomitant]
     Active Substance: CEFTRIAXONE
     Route: 042
     Dates: start: 20221219, end: 20221224
  43. CEFTRIAXONE [Concomitant]
     Active Substance: CEFTRIAXONE
     Route: 042
     Dates: start: 20221225, end: 20221230
  44. BINICAPIN [Concomitant]
     Route: 042
     Dates: start: 20221221, end: 20221221
  45. GCNAC [Concomitant]
     Route: 042
     Dates: start: 20221221, end: 20221221
  46. NEFCOM [Concomitant]
     Route: 042
     Dates: start: 20221221, end: 20221221
  47. FENTANYL [Concomitant]
     Active Substance: FENTANYL
     Dosage: 12MCG/HR 2.1MG (20 MG,1 IN 1 D)
     Route: 061
     Dates: start: 20221221, end: 20221221
  48. RAMOSETRON HYDROCHLORIDE [Concomitant]
     Active Substance: RAMOSETRON HYDROCHLORIDE
     Route: 042
     Dates: start: 20221221, end: 20221221
  49. RAMOSETRON HYDROCHLORIDE [Concomitant]
     Active Substance: RAMOSETRON HYDROCHLORIDE
     Route: 042
     Dates: start: 20221216, end: 20221216
  50. BATROXOBIN [Concomitant]
     Active Substance: BATROXOBIN
     Dosage: 6 KU (2 KU,3 IN 1 D)
     Dates: start: 20221221, end: 20221224
  51. BATROXOBIN [Concomitant]
     Active Substance: BATROXOBIN
     Route: 042
     Dates: start: 20221221, end: 20221231
  52. CACL2 [Concomitant]
     Route: 042
     Dates: start: 20221221, end: 20221221
  53. HEXAMEDINE [Concomitant]
     Dosage: (100 ML,3 IN 1 D)
     Route: 061
     Dates: start: 20221221, end: 20221221
  54. HEXAMEDINE [Concomitant]
     Dosage: (100 ML,3 IN 1 D)
     Route: 061
     Dates: start: 20221230, end: 20221230
  55. DULACKHAN [Concomitant]
     Dosage: (15 ML,3 IN 1 D)
     Route: 048
     Dates: start: 20221228, end: 20221230
  56. GLYCERIN [Concomitant]
     Active Substance: GLYCERIN
     Route: 061
     Dates: start: 20221229, end: 20221229
  57. TASNA [Concomitant]
     Dosage: (1000 MG,3 IN 1 D)
     Route: 048
     Dates: start: 20221229, end: 20221229
  58. TASNA [Concomitant]
     Dosage: (500 MG,3 IN 1 D)
     Route: 048
     Dates: start: 20221230
  59. SODIUM BICARBONATE [Concomitant]
     Active Substance: SODIUM BICARBONATE
     Route: 042
     Dates: start: 20221229, end: 20221229
  60. SODIUM BICARBONATE [Concomitant]
     Active Substance: SODIUM BICARBONATE
     Route: 042
     Dates: start: 20221229, end: 20221230
  61. SODIUM BICARBONATE [Concomitant]
     Active Substance: SODIUM BICARBONATE
     Route: 042
     Dates: start: 20221230, end: 20221231
  62. MORPHINE [Concomitant]
     Active Substance: MORPHINE
     Dosage: (3 MG,1 IN 1 D)
     Route: 042
     Dates: start: 20221229, end: 20221230
  63. ACETYLCYSTEINE [Concomitant]
     Active Substance: ACETYLCYSTEINE
     Dosage: (300 MG,3 IN 1 D)
     Route: 042
     Dates: start: 20221230, end: 20221231
  64. MEPERIDINE [Concomitant]
     Active Substance: MEPERIDINE
     Dosage: (25 MG,1 IN 1 D)
     Route: 030
     Dates: start: 20221230, end: 20221230
  65. ULTIAN [Concomitant]
     Route: 042
     Dates: start: 20221231, end: 20221231
  66. VECARON [Concomitant]
     Dates: start: 20221231, end: 20221231

REACTIONS (2)
  - Metastases to central nervous system [Recovered/Resolved]
  - Cerebral haemorrhage [Fatal]

NARRATIVE: CASE EVENT DATE: 20221126
